FAERS Safety Report 7145860-9 (Version None)
Quarter: 2010Q4

REPORT INFORMATION
  Report Type: 
  Country: None (occurrence: None)
  Receive Date: 20101208
  Receipt Date: 20101201
  Transmission Date: 20110411
  Serious: Yes (Hospitalization)
  Sender: FDA-Public Use
  Company Number: B0684505A

PATIENT
  Sex: Female

DRUGS (4)
  1. AMERGE [Suspect]
     Indication: MIGRAINE
     Route: 048
     Dates: start: 20101104, end: 20101110
  2. ALEVIATIN [Concomitant]
     Route: 065
  3. TEGRETOL [Concomitant]
     Route: 048
  4. AMITRIPTYLINE HCL [Concomitant]
     Route: 065

REACTIONS (2)
  - CONVULSION [None]
  - LOSS OF CONSCIOUSNESS [None]
